FAERS Safety Report 19904989 (Version 1)
Quarter: 2021Q3

REPORT INFORMATION
  Report Type: Spontaneous
  Country: US (occurrence: US)
  Receive Date: 20210930
  Receipt Date: 20210930
  Transmission Date: 20211014
  Serious: No
  Sender: FDA-Public Use
  Company Number: None

PATIENT
  Sex: Female

DRUGS (4)
  1. GLUCOSAMINE/CHONDROITIN [Concomitant]
  2. VITAMIN D [Concomitant]
     Active Substance: VITAMIN D NOS
  3. VITAMIN C [Concomitant]
     Active Substance: ASCORBIC ACID
  4. CARBIDOPA/LEVODOPA [Suspect]
     Active Substance: CARBIDOPA\LEVODOPA
     Indication: PARKINSON^S DISEASE
     Dosage: ?          QUANTITY:1 TABLET(S);?
     Route: 048
     Dates: start: 20130501

REACTIONS (3)
  - Muscle spasms [None]
  - Fall [None]
  - Stress [None]

NARRATIVE: CASE EVENT DATE: 20130501
